FAERS Safety Report 4957591-1 (Version None)
Quarter: 2006Q1

REPORT INFORMATION
  Report Type: 
  Country: None (occurrence: None)
  Receive Date: 20060330
  Receipt Date: 20060313
  Transmission Date: 20060701
  Serious: Yes (Hospitalization)
  Sender: FDA-Public Use
  Company Number: 2006UW04095

PATIENT
  Age: 65 Year
  Sex: Male

DRUGS (7)
  1. IRESSA [Suspect]
     Indication: METASTATIC RENAL CELL CARCINOMA
     Route: 048
     Dates: start: 20050712, end: 20051109
  2. INTRON A [Suspect]
     Indication: METASTATIC RENAL CELL CARCINOMA
     Dates: start: 20050712, end: 20051109
  3. ECOTRIN [Concomitant]
     Route: 048
     Dates: start: 20050712
  4. FLOMAX [Concomitant]
     Indication: BENIGN PROSTATIC HYPERPLASIA
     Route: 048
     Dates: start: 20020101
  5. PROSCAR [Concomitant]
     Indication: BENIGN PROSTATIC HYPERPLASIA
     Route: 048
     Dates: start: 20040719
  6. ULTRACET [Concomitant]
     Indication: PAIN
     Route: 048
     Dates: start: 20050907
  7. PROTONIX [Concomitant]
     Indication: GASTROOESOPHAGEAL REFLUX DISEASE
     Route: 048
     Dates: start: 20050214

REACTIONS (1)
  - CYSTITIS NONINFECTIVE [None]
